FAERS Safety Report 8857543 (Version 2)
Quarter: 2012Q4

REPORT INFORMATION
  Report Type: 
  Country: JP (occurrence: JP)
  Receive Date: 20121024
  Receipt Date: 20121121
  Transmission Date: 20130627
  Serious: Yes (Other)
  Sender: FDA-Public Use
  Company Number: JP-VIIV HEALTHCARE LIMITED-B0839191A

PATIENT
  Age: 66 Year
  Sex: Male

DRUGS (7)
  1. CELSENTRI [Suspect]
     Indication: HIV INFECTION
     Dosage: 300MG Twice per day
     Route: 048
     Dates: start: 20120928, end: 20121018
  2. EPZICOM [Suspect]
     Indication: HIV INFECTION
     Dosage: 1IUAX Per day
     Route: 048
     Dates: start: 20110507
  3. ISENTRESS [Suspect]
     Indication: HIV INFECTION
     Dosage: 400MG Twice per day
     Route: 048
     Dates: start: 20110507
  4. WYPAX [Concomitant]
     Indication: ANXIETY DISORDER
     Dosage: 1IUAX Twice per day
     Route: 048
     Dates: start: 20120919
  5. LENDEM [Concomitant]
     Indication: INSOMNIA
     Dosage: 1IUAX Per day
     Route: 048
     Dates: start: 20120920
  6. MAXIPIME [Concomitant]
     Indication: CASTLEMAN^S DISEASE
     Dosage: 2G Twice per day
     Dates: start: 20120928, end: 20120930
  7. MEROPEN [Concomitant]
     Indication: CASTLEMAN^S DISEASE
     Dosage: 1G Three times per day
     Dates: start: 20120930, end: 20121008

REACTIONS (2)
  - Neutrophil count decreased [Recovered/Resolved]
  - Platelet count decreased [Unknown]
